FAERS Safety Report 8505618-2 (Version None)
Quarter: 2012Q3

REPORT INFORMATION
  Report Type: 
  Country: None (occurrence: None)
  Receive Date: 20120712
  Receipt Date: 20120706
  Transmission Date: 20120928
  Serious: Yes (Hospitalization)
  Sender: FDA-Public Use
  Company Number: BR-PFIZER INC-2012163866

PATIENT
  Age: 18 Year
  Sex: Male

DRUGS (3)
  1. AMLODIPINE BESYLATE [Suspect]
     Dosage: 30 TABLETS OF AMLODIPINE 5 MG
  2. FLUNARIZINE [Concomitant]
     Dosage: 25 FLUNARIZINE 10 MG
  3. HYDROCHLOROTHIAZIDE [Concomitant]
     Dosage: 12 HYDROCHLOROTHIAZIDE 25 MG

REACTIONS (11)
  - ELECTROCARDIOGRAM ST SEGMENT DEPRESSION [None]
  - PULMONARY OEDEMA [None]
  - ATRIOVENTRICULAR BLOCK [None]
  - BUNDLE BRANCH BLOCK LEFT [None]
  - OVERDOSE [None]
  - HYPOTENSION [None]
  - SUPRAVENTRICULAR EXTRASYSTOLES [None]
  - ANURIA [None]
  - ELECTROCARDIOGRAM PR PROLONGATION [None]
  - HYPERGLYCAEMIA [None]
  - SUICIDE ATTEMPT [None]
